FAERS Safety Report 8950842 (Version 1)
Quarter: 2012Q4

REPORT INFORMATION
  Report Type: Spontaneous
  Country: US (occurrence: None)
  Receive Date: 20121128
  Receipt Date: 20121128
  Transmission Date: 20130627
  Serious: Yes (Other)
  Sender: FDA-Public Use
  Company Number: 54973 AE # 1115

PATIENT
  Age: 64 Year
  Sex: Female

DRUGS (1)
  1. HYLAND^S RESTFUL LEGS [Suspect]
     Dosage: 3 TABS X 2 DOSES X 3DAYS

REACTIONS (3)
  - Atrial flutter [None]
  - Tachycardia [None]
  - Atrial fibrillation [None]
